FAERS Safety Report 6245402-6 (Version None)
Quarter: 2009Q2

REPORT INFORMATION
  Report Type: 
  Country: None (occurrence: None)
  Receive Date: 20090625
  Receipt Date: 20090507
  Transmission Date: 20091009
  Serious: No
  Sender: FDA-Public Use
  Company Number: US-BAYER-200911895BCC

PATIENT
  Sex: Female

DRUGS (1)
  1. ALEVE ARTHRITIS CAPLETES [Suspect]
     Indication: ACCIDENTAL EXPOSURE

REACTIONS (1)
  - NO ADVERSE EVENT [None]
